FAERS Safety Report 6301876-3 (Version None)
Quarter: 2009Q3

REPORT INFORMATION
  Report Type: 
  Country: None (occurrence: None)
  Receive Date: 20090807
  Receipt Date: 20090730
  Transmission Date: 20100115
  Serious: Yes (Hospitalization)
  Sender: FDA-Public Use
  Company Number: FR-ROCHE-645166

PATIENT
  Age: 48 Year
  Sex: Female

DRUGS (4)
  1. TAMIFLU [Suspect]
     Route: 048
     Dates: start: 20090715, end: 20090717
  2. RULID [Suspect]
     Indication: INTERSTITIAL LUNG DISEASE
     Route: 048
     Dates: start: 20090715, end: 20090717
  3. DOLIPRANE [Suspect]
     Route: 048
     Dates: start: 20090713, end: 20090715
  4. ACUPAN [Concomitant]
     Indication: DRUG USE FOR UNKNOWN INDICATION
     Dates: end: 20090717

REACTIONS (1)
  - NEUTROPENIA [None]
